FAERS Safety Report 4345404-0 (Version None)
Quarter: 2004Q2

REPORT INFORMATION
  Report Type: 
  Country: None (occurrence: None)
  Receive Date: 20040421
  Receipt Date: 20040412
  Transmission Date: 20050107
  Serious: Yes (Hospitalization)
  Sender: FDA-Public Use
  Company Number: 2004206359JP

PATIENT
  Age: 74 Year
  Sex: Male
  Weight: 58 kg

DRUGS (4)
  1. CABERGOLINE [Suspect]
     Indication: PARKINSON'S DISEASE
     Dosage: 1/2 TABLET/DAY  : 3 MG/DAY
     Dates: start: 20030922, end: 20040212
  2. CABERGOLINE [Suspect]
     Indication: PARKINSON'S DISEASE
     Dosage: 1/2 TABLET/DAY  : 3 MG/DAY
     Dates: start: 20040213, end: 20040319
  3. URSO [Concomitant]
  4. ATELEC (CILNIDPINE) [Concomitant]

REACTIONS (1)
  - PNEUMONIA [None]
